FAERS Safety Report 7577419-3 (Version None)
Quarter: 2011Q2

REPORT INFORMATION
  Report Type: 
  Country: None (occurrence: None)
  Receive Date: 20110628
  Receipt Date: 20090227
  Transmission Date: 20111010
  Serious: Yes (Other)
  Sender: FDA-Public Use
  Company Number: US-BAYER-200914353NA

PATIENT
  Age: 62 Year
  Sex: Male
  Weight: 80 kg

DRUGS (22)
  1. ATROVENT [Concomitant]
     Dosage: INHALATION
     Dates: start: 20040101
  2. ATENOLOL [Concomitant]
     Dosage: 50 MG, ONCE
     Route: 048
     Dates: start: 20030101
  3. EPINEPHRINE [Concomitant]
     Dosage: 187.7484 MCG
     Route: 042
     Dates: start: 20060125
  4. HEPARIN [Concomitant]
     Dosage: 50,000 UNITS
     Route: 042
     Dates: start: 20060125, end: 20060125
  5. INSULIN [Concomitant]
     Dosage: 47 UNITS
     Route: 042
     Dates: start: 20060125
  6. ALBUTEROL SULFATE AUTOHALER [Concomitant]
     Dosage: INHALATION
     Dates: start: 20040101
  7. CILOSTAZOL [Concomitant]
     Dosage: 100 MG, BID
     Route: 048
  8. OMEPRAZOLE [Concomitant]
     Dosage: 20 MG, ONCE
     Route: 048
  9. ZOLOFT [Concomitant]
     Dosage: 50 MG, ONCE
     Route: 048
     Dates: start: 20030101
  10. APROTININ [Concomitant]
     Dosage: 371.83 ML, UNK
     Route: 042
  11. PHENYLEPHRINE HCL [Concomitant]
     Dosage: 800 MCG
     Route: 042
     Dates: start: 20060125, end: 20060125
  12. VANCOMYCIN [Concomitant]
     Dosage: 2000 MG
     Route: 042
     Dates: start: 20060125, end: 20060125
  13. TERAZOSIN HCL [Concomitant]
     Dosage: 1 MG, UNK
     Route: 048
  14. INDOCIN [Concomitant]
     Dosage: 50 MG, BID
     Route: 048
     Dates: start: 20051110
  15. ALLOPURINOL [Concomitant]
     Dosage: 200 MG, ONCE
     Route: 048
     Dates: start: 20051110
  16. MANNITOL [Concomitant]
     Dosage: 12.5 G, UNK
     Route: 042
     Dates: start: 20060125, end: 20060125
  17. TRASYLOL [Suspect]
     Indication: CORONARY ARTERY BYPASS
     Dosage: 371.83 ML, UNK
     Route: 042
     Dates: start: 20060125, end: 20060125
  18. ASPIRIN [Concomitant]
     Dosage: 81 MG, ONCE
     Route: 048
     Dates: start: 20030101
  19. COLCHICINE [Concomitant]
     Dosage: 0.6 MG ONE EVERY 2 HOURS AS NEEDED FOR PAIN
     Route: 048
     Dates: start: 20051110
  20. SODIUM BICARBONATE [Concomitant]
     Dosage: 50 MEQ
     Route: 042
     Dates: start: 20060125, end: 20060125
  21. PROTAMINE SULFATE [Concomitant]
     Dosage: 400 MG, UNK
     Route: 042
     Dates: start: 20060125, end: 20060125
  22. NITROGLYCERIN [Concomitant]
     Dosage: 14.71 MCG
     Dates: start: 20060125

REACTIONS (11)
  - UNEVALUABLE EVENT [None]
  - RENAL IMPAIRMENT [None]
  - RENAL INJURY [None]
  - PAIN [None]
  - RENAL FAILURE [None]
  - STRESS [None]
  - FEAR [None]
  - ANXIETY [None]
  - INJURY [None]
  - EMOTIONAL DISTRESS [None]
  - ANHEDONIA [None]
